FAERS Safety Report 8491412-8 (Version None)
Quarter: 2012Q3

REPORT INFORMATION
  Report Type: 
  Country: None (occurrence: None)
  Receive Date: 20120706
  Receipt Date: 20120627
  Transmission Date: 20120928
  Serious: Yes (Other)
  Sender: FDA-Public Use
  Company Number: CA-JNJFOC-20110905123

PATIENT
  Sex: Female
  Weight: 84.1 kg

DRUGS (5)
  1. REMICADE [Suspect]
     Route: 042
     Dates: start: 20110804
  2. IMURAN [Concomitant]
     Route: 048
  3. ENTOCORT EC [Concomitant]
     Route: 065
  4. REMICADE [Suspect]
     Indication: CROHN'S DISEASE
     Dosage: LOADING DOSES WEEK 0, 2, + 6
     Route: 042
     Dates: start: 20110722
  5. ESCITALOPRAM [Concomitant]
     Route: 065

REACTIONS (3)
  - RECTAL ABSCESS [None]
  - CAESAREAN SECTION [None]
  - MATERNAL EXPOSURE DURING PREGNANCY [None]
